FAERS Safety Report 5710852-0 (Version None)
Quarter: 2008Q2

REPORT INFORMATION
  Report Type: 
  Country: None (occurrence: None)
  Receive Date: 20080415
  Receipt Date: 20080402
  Transmission Date: 20081010
  Serious: Yes (Death, Hospitalization, Other)
  Sender: FDA-Public Use
  Company Number: 2008MP000073

PATIENT
  Age: 69 Year
  Sex: Male

DRUGS (1)
  1. GLIADEL [Suspect]
     Indication: DRUG USE FOR UNKNOWN INDICATION
     Dosage: 1X; ICER
     Dates: start: 20080101

REACTIONS (3)
  - CNS VENTRICULITIS [None]
  - MENINGITIS CHEMICAL [None]
  - WOUND INFECTION [None]
